FAERS Safety Report 4584725-3 (Version None)
Quarter: 2005Q1

REPORT INFORMATION
  Report Type: 
  Country: None (occurrence: None)
  Receive Date: 20050214
  Receipt Date: 20040913
  Transmission Date: 20050727
  Serious: Yes (Death, Hospitalization)
  Sender: FDA-Public Use
  Company Number: 05-054

PATIENT
  Age: 66 Year
  Sex: Female

DRUGS (14)
  1. DEXAMETHASONE [Suspect]
     Indication: MYELOMA RECURRENCE
     Dosage: 40 MG/DAY ORAL
     Route: 048
     Dates: start: 20030221, end: 20030224
  2. TIMOLOL MALEATE [Concomitant]
  3. ACETAMINOPHEN [Concomitant]
  4. FUROSEMIDE [Concomitant]
  5. POTASSIUM CHLORIDE [Concomitant]
  6. SUPPLEMENT [Concomitant]
  7. VITAMIN C [Concomitant]
  8. PROCHLORPERAZINE [Concomitant]
  9. TEMAZEPAM [Concomitant]
  10. LEVOTHYROXINE [Concomitant]
  11. PAMIDRONATE DISODIUM [Concomitant]
  12. TRIMETHOPRIM [Concomitant]
  13. SULFAMETHOXAZOLE [Concomitant]
  14. RANITIDINE [Concomitant]

REACTIONS (4)
  - GASTROINTESTINAL HAEMORRHAGE [None]
  - HEPATIC FAILURE [None]
  - MALIGNANT NEOPLASM PROGRESSION [None]
  - MULTIPLE MYELOMA [None]
